FAERS Safety Report 9926618 (Version 2)
Quarter: 2014Q1

REPORT INFORMATION
  Report Type: Report from Study
  Country: JP (occurrence: JP)
  Receive Date: 20140226
  Receipt Date: 20140226
  Transmission Date: 20141002
  Serious: Yes (Other)
  Sender: FDA-Public Use
  Company Number: JP-ABBVIE-13P-087-1067521-00

PATIENT
  Age: 47 Year
  Sex: Female

DRUGS (3)
  1. LEUPLIN SR [Suspect]
     Indication: BREAST CANCER
     Route: 058
     Dates: start: 20120328
  2. HERCEPTIN [Concomitant]
     Indication: BREAST CANCER
     Dosage: BEFORE START OF LEUPLIN SR
     Route: 050
     Dates: end: 20120418
  3. NOLVADEX [Concomitant]
     Indication: BREAST CANCER
     Route: 048

REACTIONS (1)
  - Cardiac failure [Recovered/Resolved]
